FAERS Safety Report 23767953 (Version 1)
Quarter: 2024Q2

REPORT INFORMATION
  Report Type: Spontaneous
  Country: US (occurrence: None)
  Receive Date: 20240419
  Receipt Date: 20240419
  Transmission Date: 20240716
  Serious: No
  Sender: FDA-Public Use
  Company Number: None

PATIENT
  Age: 58 Year
  Sex: Female

DRUGS (1)
  1. AJOVY [Suspect]
     Active Substance: FREMANEZUMAB-VFRM
     Dosage: 225 MG MONTHLY SUBCUTANEOUS?
     Route: 058

REACTIONS (4)
  - Pruritus [None]
  - Rash [None]
  - Swelling [None]
  - Refusal of treatment by patient [None]

NARRATIVE: CASE EVENT DATE: 20240419
